FAERS Safety Report 9517907 (Version 1)
Quarter: 2013Q3

REPORT INFORMATION
  Report Type: Spontaneous
  Country: US (occurrence: None)
  Receive Date: 20130910
  Receipt Date: 20130910
  Transmission Date: 20140515
  Serious: Yes (Life-Threatening, Disabling)
  Sender: FDA-Public Use
  Company Number: None

PATIENT
  Age: 67 Year
  Sex: Female
  Weight: 74.84 kg

DRUGS (2)
  1. LIPITOR [Suspect]
     Indication: BLOOD CHOLESTEROL INCREASED
     Dosage: 1 PILL, ONCE DAILY
     Route: 048
  2. MEVACOR [Suspect]
     Indication: BLOOD CHOLESTEROL INCREASED
     Dosage: 1 PILL, ONCE DAILY
     Route: 048

REACTIONS (7)
  - Muscle spasms [None]
  - Pain [None]
  - Myalgia [None]
  - Blood glucose abnormal [None]
  - Hepatic enzyme abnormal [None]
  - Amnesia [None]
  - Balance disorder [None]
